FAERS Safety Report 6677243-X (Version None)
Quarter: 2010Q2

REPORT INFORMATION
  Report Type: 
  Country: None (occurrence: None)
  Receive Date: 20100408
  Receipt Date: 20100408
  Transmission Date: 20101027
  Serious: No
  Sender: FDA-Public Use
  Company Number: None

PATIENT
  Age: 60 Year
  Sex: Female
  Weight: 77.5651 kg

DRUGS (10)
  1. LEVAQUIN [Suspect]
     Indication: PNEUMONIA
     Dosage: 750 MG Q24 IV
     Route: 042
     Dates: start: 20100108, end: 20100110
  2. CRESTOR [Concomitant]
  3. DOCUSATE [Concomitant]
  4. DUONEB [Concomitant]
  5. ASPIRIN [Concomitant]
  6. LACTOBACILLUS [Concomitant]
  7. NICODERM [Concomitant]
  8. SOLU-MEDROL [Concomitant]
  9. TUSSIONEX [Concomitant]
  10. ZESTRIL [Concomitant]

REACTIONS (3)
  - INFUSION RELATED REACTION [None]
  - PRURITUS [None]
  - RASH [None]
